FAERS Safety Report 8171018-0 (Version None)
Quarter: 2012Q1

REPORT INFORMATION
  Report Type: 
  Country: None (occurrence: None)
  Receive Date: 20120113
  Receipt Date: 20111005
  Transmission Date: 20120608
  Serious: No
  Sender: FDA-Public Use
  Company Number: 2011S1000081

PATIENT
  Age: 63 Year
  Sex: Female
  Weight: 70.7611 kg

DRUGS (16)
  1. ESTRADIOL [Concomitant]
  2. LOSARTAN POTASSIUM [Concomitant]
  3. ZYRTEC [Concomitant]
  4. LEVOTHYROXINE SODIUM [Concomitant]
  5. DIPHENOXYLATE HCL + ATROPINE SULFATE [Concomitant]
  6. PILOCARPINE [Concomitant]
  7. PREDNISONE TAB [Concomitant]
  8. VICODIN [Concomitant]
  9. AMITRIPTYLINE HCL [Concomitant]
  10. KRYSTEXXA [Suspect]
     Indication: GOUT
     Dosage: 8 MG;IV
     Route: 042
     Dates: start: 20110601, end: 20110929
  11. OMEPRAZOLE [Concomitant]
  12. SIMVASTATIN [Concomitant]
  13. BUPROPION HCL [Concomitant]
  14. TYLENOL (CAPLET) [Concomitant]
  15. RANITIDINE [Concomitant]
  16. CYCLOBENZAPRINE [Concomitant]

REACTIONS (1)
  - BLOOD CREATININE INCREASED [None]
